FAERS Safety Report 17032217 (Version 1)
Quarter: 2019Q4

REPORT INFORMATION
  Report Type: Spontaneous
  Country: JP (occurrence: JP)
  Receive Date: 20191114
  Receipt Date: 20191114
  Transmission Date: 20200122
  Serious: Yes (Other)
  Sender: FDA-Public Use
  Company Number: JP-JNJFOC-20191106220

PATIENT
  Age: 7 Decade

DRUGS (1)
  1. DARZALEX [Suspect]
     Active Substance: DARATUMUMAB
     Indication: PLASMA CELL MYELOMA
     Route: 042

REACTIONS (8)
  - Pneumonia [Unknown]
  - Diabetes mellitus [Unknown]
  - Cough [Unknown]
  - Hypoacusis [Unknown]
  - Rhinorrhoea [Unknown]
  - Eczema [Unknown]
  - Pyrexia [Unknown]
  - Taste disorder [Unknown]
